FAERS Safety Report 9495222 (Version 2)
Quarter: 2013Q3

REPORT INFORMATION
  Report Type: Spontaneous
  Country: BR (occurrence: BR)
  Receive Date: 20130903
  Receipt Date: 20130927
  Transmission Date: 20140515
  Serious: Yes (Death, Hospitalization, Other)
  Sender: FDA-Public Use
  Company Number: BR-PFIZER INC-2013253124

PATIENT
  Age: 70 Year
  Sex: Female

DRUGS (1)
  1. SUTENT [Suspect]
     Indication: METASTATIC RENAL CELL CARCINOMA
     Dosage: 50 MG, CYCLIC (CYCLE 4X2)
     Route: 048
     Dates: start: 20120514

REACTIONS (4)
  - Disease progression [Fatal]
  - Metastatic renal cell carcinoma [Fatal]
  - Malaise [Not Recovered/Not Resolved]
  - Coma [Unknown]
